FAERS Safety Report 9441782 (Version 1)
Quarter: 2013Q3

REPORT INFORMATION
  Report Type: Spontaneous
  Country: US (occurrence: US)
  Receive Date: 20130806
  Receipt Date: 20130806
  Transmission Date: 20140515
  Serious: No
  Sender: FDA-Public Use
  Company Number: US-PFIZER INC-2013224242

PATIENT
  Age: 86 Year
  Sex: Female
  Weight: 70.3 kg

DRUGS (7)
  1. LYRICA [Suspect]
     Indication: NEUROPATHY PERIPHERAL
     Dosage: 150 MG, UNK
  2. LYRICA [Suspect]
     Dosage: 25 MG, UNK
  3. LYRICA [Suspect]
     Dosage: UNK
     Dates: end: 201306
  4. VITAMIN B12 [Suspect]
     Dosage: UNK
     Dates: start: 2013
  5. METOPROLOL [Concomitant]
     Indication: CARDIAC DISORDER
     Dosage: 25 MG, 1X/DAY
  6. CYMBALTA [Concomitant]
     Dosage: 60 MG, 1X/DAY
  7. VASOPRESSIN AND ANALOGUES [Concomitant]
     Indication: RENAL DISORDER
     Dosage: UNK

REACTIONS (4)
  - Dizziness [Not Recovered/Not Resolved]
  - General physical health deterioration [Unknown]
  - Gait disturbance [Unknown]
  - Drug ineffective [Unknown]
